FAERS Safety Report 7294934-0 (Version None)
Quarter: 2011Q1

REPORT INFORMATION
  Report Type: 
  Country: None (occurrence: None)
  Receive Date: 20110216
  Receipt Date: 20110204
  Transmission Date: 20110831
  Serious: Yes (Other)
  Sender: FDA-Public Use
  Company Number: US-BAYER-2011-012623

PATIENT
  Sex: Female

DRUGS (2)
  1. MIRENA [Suspect]
     Dosage: DAILY DOSE 20 ?G/D
     Route: 015
     Dates: start: 20100501, end: 20110101
  2. MIRENA [Suspect]
     Indication: CONTRACEPTION
     Dosage: DAILY DOSE 20 ?G/D
     Route: 015
     Dates: start: 20100401, end: 20100501

REACTIONS (3)
  - DEVICE DISLOCATION [None]
  - DEVICE EXPULSION [None]
  - MUSCLE SPASMS [None]
